FAERS Safety Report 17839348 (Version 2)
Quarter: 2020Q3

REPORT INFORMATION
  Report Type: Spontaneous
  Country: US (occurrence: US)
  Receive Date: 20200529
  Receipt Date: 20200714
  Transmission Date: 20201103
  Serious: No
  Sender: FDA-Public Use
  Company Number: US-JNJFOC-20200511503

PATIENT
  Sex: Female
  Weight: 48.58 kg

DRUGS (1)
  1. WOMENS ROGAINE UNSCENTED [Suspect]
     Active Substance: MINOXIDIL
     Indication: ALOPECIA
     Dosage: DOSE AND FREQUENCY: HALF CAP FULL FOR ONCE DAILY.?THE PRODUCT WAS LAST ADMINISTERED ON 04?MAY?2020.
     Route: 061
     Dates: start: 201901

REACTIONS (2)
  - Drug ineffective [Unknown]
  - Hair growth abnormal [Not Recovered/Not Resolved]
